FAERS Safety Report 22849317 (Version 7)
Quarter: 2024Q1

REPORT INFORMATION
  Report Type: Spontaneous
  Country: US (occurrence: US)
  Receive Date: 20230822
  Receipt Date: 20240325
  Transmission Date: 20240410
  Serious: No
  Sender: FDA-Public Use
  Company Number: US-PFIZER INC-202300276285

PATIENT
  Age: 17 Year
  Sex: Female
  Weight: 86.18 kg

DRUGS (6)
  1. GENOTROPIN [Suspect]
     Active Substance: SOMATROPIN
     Indication: Growth hormone deficiency
     Dosage: UNK (0.4)
  2. GENOTROPIN [Suspect]
     Active Substance: SOMATROPIN
     Dosage: UNK (0.6)
  3. GENOTROPIN [Suspect]
     Active Substance: SOMATROPIN
     Dosage: UNK UNK, 1X/DAY (0.06)
  4. GENOTROPIN [Suspect]
     Active Substance: SOMATROPIN
     Dosage: UNK
  5. SYNTHROID [Concomitant]
     Active Substance: LEVOTHYROXINE SODIUM
     Indication: Thyroid disorder
     Dosage: 125 UG, 1X/DAY
     Route: 048
  6. HYDROCORTISONE [Concomitant]
     Active Substance: HYDROCORTISONE
     Dosage: 5 MG, 3X/DAY
     Route: 048

REACTIONS (4)
  - Poor quality device used [Unknown]
  - Device mechanical issue [Unknown]
  - Drug dose omission by device [Unknown]
  - Device information output issue [Unknown]
